FAERS Safety Report 6441967-X (Version None)
Quarter: 2009Q4

REPORT INFORMATION
  Report Type: 
  Country: None (occurrence: None)
  Receive Date: 20091116
  Receipt Date: 20091104
  Transmission Date: 20100525
  Serious: Yes (Other)
  Sender: FDA-Public Use
  Company Number: US-JNJCH-2009029133

PATIENT
  Age: 41 Year
  Sex: Female

DRUGS (1)
  1. LISTERINE WHITENING QUICK DISSOLVING STRIPS [Suspect]
     Indication: DENTAL CARE
     Dosage: TEXT:TWO STRIPS TWICE DAILY
     Route: 048
     Dates: start: 20091101, end: 20091103

REACTIONS (4)
  - APPLICATION SITE BURN [None]
  - APPLICATION SITE PAIN [None]
  - ORAL PAIN [None]
  - STOMATITIS [None]
